FAERS Safety Report 23889266 (Version 1)
Quarter: 2024Q2

REPORT INFORMATION
  Report Type: Spontaneous
  Country: FR (occurrence: None)
  Receive Date: 20240523
  Receipt Date: 20240523
  Transmission Date: 20240716
  Serious: Yes (Hospitalization)
  Sender: FDA-Public Use
  Company Number: 2024A119258

PATIENT
  Age: 28 Year
  Sex: Female
  Weight: 78 kg

DRUGS (7)
  1. QUETIAPINE [Suspect]
     Active Substance: QUETIAPINE
     Dosage: 10 TABLETS500.0MG ONCE/SINGLE ADMINISTRATION
     Route: 048
     Dates: start: 20240418
  2. BROMAZEPAM [Suspect]
     Active Substance: BROMAZEPAM
     Dosage: 26 TABLETS 156.0MG ONCE/SINGLE ADMINISTRATION
     Route: 048
     Dates: start: 20240418
  3. LOXAPINE [Suspect]
     Active Substance: LOXAPINE
     Dosage: 7 TABLETS 350.0MG ONCE/SINGLE ADMINISTRATION
     Route: 048
     Dates: start: 20240418
  4. SERTRALINE HYDROCHLORIDE [Suspect]
     Active Substance: SERTRALINE HYDROCHLORIDE
     Dosage: 20 TABLETS 1000.0MG ONCE/SINGLE ADMINISTRATION
     Route: 048
     Dates: start: 20240418
  5. VENLAFAXINE [Suspect]
     Active Substance: VENLAFAXINE HYDROCHLORIDE
     Dosage: 13 TABLETS 975.0MG ONCE/SINGLE ADMINISTRATION
     Route: 048
     Dates: start: 20240418
  6. COCAINE [Suspect]
     Active Substance: COCAINE
     Dates: start: 20240418
  7. ALCOHOL [Suspect]
     Active Substance: ALCOHOL
     Dosage: BLOOD ALCOHOL LEVEL OF 1.3 G/L
     Dates: start: 20240418

REACTIONS (3)
  - Electrocardiogram abnormal [Recovered/Resolved]
  - Poisoning deliberate [Recovered/Resolved]
  - Depressed level of consciousness [Recovered/Resolved]

NARRATIVE: CASE EVENT DATE: 20240418
